FAERS Safety Report 7941683-9 (Version None)
Quarter: 2011Q4

REPORT INFORMATION
  Report Type: 
  Country: None (occurrence: None)
  Receive Date: 20111128
  Receipt Date: 20111128
  Transmission Date: 20120403
  Serious: Yes (Hospitalization)
  Sender: FDA-Public Use
  Company Number: None

PATIENT
  Age: 84 Year
  Sex: Female
  Weight: 91 kg

DRUGS (1)
  1. VANCOMYCIN [Suspect]
     Route: 042

REACTIONS (2)
  - STEVENS-JOHNSON SYNDROME [None]
  - RASH [None]
